FAERS Safety Report 6959658-5 (Version None)
Quarter: 2010Q3

REPORT INFORMATION
  Report Type: 
  Country: None (occurrence: None)
  Receive Date: 20100827
  Receipt Date: 19950510
  Transmission Date: 20110219
  Serious: Yes (Other)
  Sender: FDA-Public Use
  Company Number: LEO-2010-00729

PATIENT
  Age: 39 Year
  Sex: Female

DRUGS (1)
  1. DAIVONEX (CALCIPOTRIOL) [Suspect]
     Indication: PSORIASIS
     Dosage: TOPICAL
     Route: 061
     Dates: start: 19950201, end: 19950204

REACTIONS (2)
  - DYSTONIA [None]
  - EXTRAPYRAMIDAL DISORDER [None]
